FAERS Safety Report 4439509-3 (Version None)
Quarter: 2004Q3

REPORT INFORMATION
  Report Type: 
  Country: None (occurrence: None)
  Receive Date: 20040901
  Receipt Date: 20040901
  Transmission Date: 20050211
  Serious: Yes (Hospitalization)
  Sender: FDA-Public Use
  Company Number: None

PATIENT
  Sex: Male
  Weight: 99.7913 kg

DRUGS (3)
  1. CLOZARIL [Suspect]
     Indication: SCHIZOPHRENIA
     Dosage: PO [PRIOR TO ADMISSION]
     Route: 048
  2. GEODON [Suspect]
     Indication: SCHIZOPHRENIA
     Dosage: PO (PRIOR TO ADMISSION)
  3. PROZAC [Suspect]
     Indication: SCHIZOPHRENIA
     Dosage: PO (PRIOR TO ADMISSION)

REACTIONS (1)
  - TRISMUS [None]
